FAERS Safety Report 15097326 (Version 1)
Quarter: 2018Q2

REPORT INFORMATION
  Report Type: Spontaneous
  Country: US (occurrence: US)
  Receive Date: 20180610
  Receipt Date: 20180610
  Transmission Date: 20180711
  Serious: Yes (Other)
  Sender: FDA-Public Use
  Company Number: None

PATIENT
  Age: 49 Year
  Sex: Male
  Weight: 105.75 kg

DRUGS (7)
  1. MULTIVITAMINS [Concomitant]
     Active Substance: VITAMINS
  2. MAGNESIUM SUPPLEMENT [Concomitant]
  3. CLINDAMYCIN CAP 300MG [Suspect]
     Active Substance: CLINDAMYCIN
     Indication: TOOTH ABSCESS
     Dosage: ?          QUANTITY:1 DF DOSAGE FORM;?
     Route: 048
     Dates: start: 20180503, end: 20180509
  4. B VITAMINS [Concomitant]
     Active Substance: CYANOCOBALAMIN\DEXPANTHENOL\NIACINAMIDE\PYRIDOXINE HYDROCHLORIDE\RIBOFLAVIN 5^-PHOSPHATE SODIUM\THIAMINE HYDROCHLORIDE\VITAMIN B COMPLEX
  5. FISH OIL [Concomitant]
     Active Substance: FISH OIL
  6. PROBIOTICS [Concomitant]
     Active Substance: PROBIOTICS NOS
  7. D VITAMINS [Concomitant]

REACTIONS (3)
  - Dyspepsia [None]
  - Contraindicated drug prescribed [None]
  - Clostridium difficile colitis [None]

NARRATIVE: CASE EVENT DATE: 20180503
